FAERS Safety Report 4941503-0 (Version None)
Quarter: 2006Q1

REPORT INFORMATION
  Report Type: 
  Country: None (occurrence: None)
  Receive Date: 20060313
  Receipt Date: 20050824
  Transmission Date: 20060701
  Serious: Yes (Hospitalization, Other)
  Sender: FDA-Public Use
  Company Number: PHBS2005JP12385

PATIENT
  Age: 76 Year
  Sex: Female

DRUGS (6)
  1. STARSIS [Suspect]
     Indication: DIABETES MELLITUS
     Dosage: 270 MG, QD
     Route: 048
     Dates: start: 20050624, end: 20050726
  2. SEVEN EP [Concomitant]
     Indication: GASTRITIS
     Dates: start: 20040501
  3. AMLODIN [Concomitant]
     Indication: HYPERTENSION
     Dosage: 5 MG, UNK
     Dates: start: 20040501
  4. LOPEMIN [Concomitant]
     Indication: DIARRHOEA
     Dosage: 3 MG, UNK
     Dates: start: 20050501
  5. OPIUM TINCTURE [Concomitant]
     Indication: DIARRHOEA
     Dosage: 1.5 ML, UNK
     Dates: start: 20050501
  6. STOGAR [Concomitant]
     Indication: GASTRITIS
     Dosage: 20 MG, UNK
     Dates: start: 20050501

REACTIONS (4)
  - ALANINE AMINOTRANSFERASE INCREASED [None]
  - ASPARTATE AMINOTRANSFERASE INCREASED [None]
  - BLOOD ALKALINE PHOSPHATASE INCREASED [None]
  - HEPATIC FUNCTION ABNORMAL [None]
